FAERS Safety Report 17399327 (Version 1)
Quarter: 2020Q1

REPORT INFORMATION
  Report Type: Spontaneous
  Country: JP (occurrence: JP)
  Receive Date: 20200211
  Receipt Date: 20200211
  Transmission Date: 20200409
  Serious: Yes (Hospitalization, Disabling, Other)
  Sender: FDA-Public Use
  Company Number: JP-ROCHE-2544716

PATIENT
  Age: 71 Year
  Sex: Female
  Weight: 56 kg

DRUGS (5)
  1. SULFAMETHOXAZOLE/TRIMETHOPRIM [Concomitant]
     Active Substance: SULFAMETHOXAZOLE\TRIMETHOPRIM
     Dosage: DOSAGE IS UNCERTAIN.
     Route: 065
     Dates: start: 20191105
  2. PREDONINE [Suspect]
     Active Substance: PREDNISOLONE
     Indication: PRODUCT USED FOR UNKNOWN INDICATION
     Route: 065
     Dates: start: 20191031
  3. ACTEMRA [Suspect]
     Active Substance: TOCILIZUMAB
     Indication: TEMPORAL ARTERITIS
     Route: 058
     Dates: start: 20191114, end: 20191219
  4. SODIUM RABEPRAZOLE [Concomitant]
     Active Substance: RABEPRAZOLE SODIUM
     Dosage: DOSAGE IS UNCERTAIN.
     Route: 048
     Dates: start: 20191102
  5. DENOTAS [Concomitant]
     Active Substance: CALCIUM CARBONATE\CHOLECALCIFEROL\MAGNESIUM CARBONATE
     Dosage: DOSAGE IS UNCERTAIN.
     Route: 048
     Dates: start: 20191121, end: 20191222

REACTIONS (7)
  - Bacteraemia [Unknown]
  - Meningitis bacterial [Recovered/Resolved]
  - Muscle abscess [Unknown]
  - Infective spondylitis [Unknown]
  - Panniculitis [Not Recovered/Not Resolved]
  - Fasciitis [Not Recovered/Not Resolved]
  - Urinary tract infection [Not Recovered/Not Resolved]

NARRATIVE: CASE EVENT DATE: 20191223
